FAERS Safety Report 8986336 (Version 1)
Quarter: 2012Q4

REPORT INFORMATION
  Report Type: Spontaneous
  Country: US (occurrence: None)
  Receive Date: 20121108
  Receipt Date: 20121108
  Transmission Date: 20130627
  Serious: Yes (Hospitalization)
  Sender: FDA-Public Use
  Company Number: 31105

PATIENT
  Age: 73 Year
  Sex: Female
  Weight: 61.24 kg

DRUGS (2)
  1. GLASSIA [Suspect]
     Indication: ALPHA-1 ANTI-TRYPSIN DEFICIENCY
     Route: 042
     Dates: start: 20120928
  2. HYZENTRA [Concomitant]

REACTIONS (6)
  - Abdominal pain lower [None]
  - Renal pain [None]
  - Urinary tract infection [None]
  - Feeling abnormal [None]
  - Pneumonia [None]
  - Chronic obstructive pulmonary disease [None]
